FAERS Safety Report 4499325-3 (Version None)
Quarter: 2004Q3

REPORT INFORMATION
  Report Type: 
  Country: None (occurrence: None)
  Receive Date: 20040928
  Receipt Date: 20040802
  Transmission Date: 20050211
  Serious: No
  Sender: FDA-Public Use
  Company Number: 04P-163-0268733-00

PATIENT
  Age: 78 Year
  Weight: 45.3597 kg

DRUGS (3)
  1. HUMIRA [Suspect]
     Indication: RHEUMATOID ARTHRITIS
     Dosage: 40 MG, ONCE, SUBCUTANEOUS
     Route: 058
     Dates: start: 20040401, end: 20040401
  2. RISEDRONATE SODIUM [Concomitant]
  3. FOLIC ACID [Concomitant]

REACTIONS (1)
  - DECUBITUS ULCER [None]
